FAERS Safety Report 15202374 (Version 1)
Quarter: 2018Q3

REPORT INFORMATION
  Report Type: Report from Study
  Country: PL (occurrence: PL)
  Receive Date: 20180726
  Receipt Date: 20180726
  Transmission Date: 20181010
  Serious: Yes (Hospitalization)
  Sender: FDA-Public Use
  Company Number: PL-SAKK-2018SA159789AA

PATIENT
  Weight: 128 kg

DRUGS (10)
  1. TRITACE [Concomitant]
     Active Substance: RAMIPRIL
     Dosage: 10 MG
  2. FUROSEMIDE. [Concomitant]
     Active Substance: FUROSEMIDE
     Dosage: 40 MG
  3. LIPANTHYL SUPRA [Concomitant]
     Active Substance: FENOFIBRATE
     Dosage: 215 MG
  4. BETO ZK [Concomitant]
     Active Substance: METOPROLOL SUCCINATE
     Dosage: 50 MG
  5. ATROX [Concomitant]
     Active Substance: ATORVASTATIN CALCIUM
     Dosage: 40 MG
  6. ALDAN [AMLODIPINE BESILATE] [Concomitant]
     Dosage: 10 MG
  7. EUTHYROX N [Concomitant]
     Active Substance: LEVOTHYROXINE SODIUM
  8. BIOPRAZOL [Concomitant]
     Dosage: 20 MG
  9. INSULIN GLARGINE [Suspect]
     Active Substance: INSULIN GLARGINE
     Dosage: UNK
     Dates: start: 20170530
  10. ACARD [Concomitant]
     Active Substance: ASPIRIN
     Dosage: 75 MG

REACTIONS (1)
  - Cerebral ischaemia [Recovered/Resolved]

NARRATIVE: CASE EVENT DATE: 20180501
